FAERS Safety Report 7086997-2 (Version None)
Quarter: 2010Q4

REPORT INFORMATION
  Report Type: 
  Country: None (occurrence: None)
  Receive Date: 20101106
  Receipt Date: 20101021
  Transmission Date: 20110411
  Serious: No
  Sender: FDA-Public Use
  Company Number: US-WYE-H18294810

PATIENT
  Sex: Male
  Weight: 90.8 kg

DRUGS (8)
  1. EFFEXOR [Suspect]
     Indication: DEPRESSION
     Route: 048
     Dates: start: 20070101
  2. EFFEXOR [Suspect]
     Route: 065
     Dates: start: 20090101, end: 20100101
  3. EFFEXOR [Suspect]
     Dosage: TAPERED DOSE
     Route: 048
     Dates: start: 20100101, end: 20101016
  4. TOCOPHEROL CONCENTRATE CAP [Concomitant]
  5. SIMVASTATIN [Concomitant]
  6. VITAMIN B [Concomitant]
  7. HYDROCHLOROTHIAZIDE [Concomitant]
  8. LISINOPRIL [Concomitant]

REACTIONS (10)
  - ANXIETY [None]
  - DISTURBANCE IN ATTENTION [None]
  - DIZZINESS [None]
  - DRUG WITHDRAWAL SYNDROME [None]
  - ERECTILE DYSFUNCTION [None]
  - IRRITABILITY [None]
  - LOSS OF LIBIDO [None]
  - MUSCLE SPASMS [None]
  - MYALGIA [None]
  - NIGHT SWEATS [None]
